FAERS Safety Report 8826320 (Version 1)
Quarter: 2012Q4

REPORT INFORMATION
  Report Type: 
  Country: IT (occurrence: IT)
  Receive Date: 20121005
  Receipt Date: 20121005
  Transmission Date: 20130627
  Serious: Yes (Hospitalization)
  Sender: FDA-Public Use
  Company Number: IT-ROCHE-1141123

PATIENT
  Age: 46 Year
  Sex: Male

DRUGS (2)
  1. SYNFLEX [Suspect]
     Indication: OTITIS EXTERNA
     Dosage: one capsule as required
     Route: 048
     Dates: start: 20120906, end: 20120906
  2. SPEKTRAMOX [Suspect]
     Indication: OTITIS EXTERNA
     Dosage: 875 mg plus 125 mg
     Route: 048
     Dates: start: 20120906, end: 20120910

REACTIONS (1)
  - Dermatosis [Recovering/Resolving]
